FAERS Safety Report 17722820 (Version 1)
Quarter: 2020Q2

REPORT INFORMATION
  Report Type: Spontaneous
  Country: CN (occurrence: CN)
  Receive Date: 20200429
  Receipt Date: 20200429
  Transmission Date: 20200714
  Serious: Yes (Hospitalization, Other)
  Sender: FDA-Public Use
  Company Number: CN-JNJFOC-20200433321

PATIENT
  Age: 55 Year
  Sex: Male

DRUGS (5)
  1. RIVAROXABAN [Suspect]
     Active Substance: RIVAROXABAN
     Indication: DEEP VEIN THROMBOSIS
     Dosage: UNK
     Route: 048
     Dates: start: 20180106
  2. AVELOX [Suspect]
     Active Substance: MOXIFLOXACIN HYDROCHLORIDE
     Indication: PNEUMONIA
     Dosage: UNK
     Route: 065
     Dates: start: 20180112, end: 20180123
  3. CEFOPERAZONE SODIUM AND SULBACTAM SODIUM [Concomitant]
     Active Substance: CEFOPERAZONE SODIUM\SULBACTAM SODIUM
     Dosage: UNK
     Dates: start: 20171123, end: 20171207
  4. AVELOX [Suspect]
     Active Substance: MOXIFLOXACIN HYDROCHLORIDE
     Indication: LUPUS NEPHRITIS
     Dosage: UNK
     Route: 041
     Dates: start: 20171112, end: 20171123
  5. CEFOPERAZONE SODIUM AND SULBACTAM SODIUM [Concomitant]
     Active Substance: CEFOPERAZONE SODIUM\SULBACTAM SODIUM
     Dosage: UNK
     Dates: start: 20180106, end: 20180123

REACTIONS (5)
  - Oedema peripheral [Unknown]
  - Pyrexia [Recovered/Resolved]
  - Rash [Unknown]
  - Deep vein thrombosis [Unknown]
  - Erythema [Unknown]

NARRATIVE: CASE EVENT DATE: 20171113
